FAERS Safety Report 8571837-2 (Version None)
Quarter: 2012Q3

REPORT INFORMATION
  Report Type: 
  Country: None (occurrence: None)
  Receive Date: 20120806
  Receipt Date: 20120727
  Transmission Date: 20120928
  Serious: Yes (Hospitalization)
  Sender: FDA-Public Use
  Company Number: GB-BAYER-2011-122484

PATIENT
  Age: 65 Year
  Sex: Female
  Weight: 56 kg

DRUGS (17)
  1. NEXAVAR [Suspect]
     Indication: METASTASIS
     Dosage: 200 MG, QD
     Route: 048
     Dates: start: 20111118, end: 20111120
  2. CODEINE PHOSPHATE [Concomitant]
     Indication: ANALGESIC THERAPY
     Dosage: 30 - 40 MG, QID, PRN
     Route: 048
     Dates: start: 20090228
  3. LOPERAMIDE [Concomitant]
     Indication: DIARRHOEA
     Dosage: 2 MG, PRN
     Route: 048
     Dates: start: 20051209
  4. LORATADINA [Concomitant]
     Indication: RHINITIS ALLERGIC
     Dosage: 10 MG, QD, PRN
     Route: 048
     Dates: start: 20090521
  5. PROCHLORPERAZINE MALEATE [Concomitant]
     Indication: NAUSEA
     Dosage: 3 MG (QID), PRN
     Route: 002
     Dates: start: 20110401
  6. PROCHLORPERAZINE MALEATE [Concomitant]
     Indication: VOMITING
  7. MENTHOL [Concomitant]
     Indication: SCIATICA
     Dosage: UNK UNK, PRN
     Route: 061
     Dates: start: 20110913, end: 20111125
  8. NEXAVAR [Suspect]
     Dosage: 200 MG, HS
     Route: 048
     Dates: start: 20111124
  9. ACETAMINOPHEN [Concomitant]
     Indication: PAIN
     Dosage: 15, QID, PRN
     Route: 048
     Dates: start: 20060202
  10. ACETAMINOPHEN [Concomitant]
     Indication: HEADACHE
  11. SIMETHICONE [Concomitant]
     Indication: ERUCTATION
     Dosage: 125 MG (?), PRN
     Route: 048
     Dates: start: 20110219
  12. STERIMAR [Concomitant]
     Indication: NASAL CONGESTION
     Dosage: ?(ILLEGIBLE), PRN
     Route: 045
     Dates: start: 20110723
  13. NEXAVAR [Suspect]
     Indication: NEUROENDOCRINE CARCINOMA METASTATIC
     Dosage: 200 MG, QD
     Route: 048
     Dates: start: 20110505, end: 20111113
  14. ZOPICLONE [Concomitant]
     Indication: INSOMNIA
     Dosage: 7.5 MG, QD
     Route: 048
     Dates: start: 20060105
  15. ZOPICLONE [Concomitant]
     Indication: FATIGUE
  16. PEPPERMINT OIL [Concomitant]
     Indication: ABDOMINAL PAIN
     Dosage: 1 - 2 DF (?), PRN
     Route: 048
     Dates: start: 20100810
  17. OMEPRAZOLE [Concomitant]
     Indication: DUODENAL ULCER
     Dosage: 80 MG, QD
     Route: 048
     Dates: start: 20100610

REACTIONS (1)
  - DUODENAL ULCER [None]
